FAERS Safety Report 12878229 (Version 1)
Quarter: 2016Q4

REPORT INFORMATION
  Report Type: Spontaneous
  Country: PT (occurrence: PT)
  Receive Date: 20161024
  Receipt Date: 20161024
  Transmission Date: 20170207
  Serious: Yes (Other)
  Sender: FDA-Public Use
  Company Number: PT-BAYER-2016-191344

PATIENT
  Age: 31 Year
  Sex: Female

DRUGS (5)
  1. DARBEPOETIN ALFA [Concomitant]
     Active Substance: DARBEPOETIN ALFA
     Dosage: 10 ?G, OW
  2. METHYLDOPA. [Concomitant]
     Active Substance: METHYLDOPA
     Dosage: 500 MG, UNK
  3. IRON [Concomitant]
     Active Substance: IRON
  4. FOLIC ACID. [Concomitant]
     Active Substance: FOLIC ACID
     Dosage: 5 MG, QD
  5. ACETYLSALICYLIC ACID({=100 MG) [Suspect]
     Active Substance: ASPIRIN
     Dosage: 100 MG, QD

REACTIONS (9)
  - Hypertension [None]
  - Respiratory failure [None]
  - Hypervolaemia [None]
  - Hyperbilirubinaemia [None]
  - Maternal exposure during pregnancy [None]
  - Hepatocellular injury [None]
  - Drug-induced liver injury [None]
  - Renal impairment [None]
  - Respiratory tract infection [None]

NARRATIVE: CASE EVENT DATE: 201007
